FAERS Safety Report 17770115 (Version 3)
Quarter: 2020Q3

REPORT INFORMATION
  Report Type: Spontaneous
  Country: DE (occurrence: DE)
  Receive Date: 20200512
  Receipt Date: 20200709
  Transmission Date: 20201102
  Serious: Yes (Other)
  Sender: FDA-Public Use
  Company Number: DE-MYLANLABS-2020M1045430

PATIENT
  Age: 82 Year
  Sex: Female
  Weight: 154 kg

DRUGS (9)
  1. ATROVENT [Suspect]
     Active Substance: IPRATROPIUM BROMIDE
     Indication: PRODUCT USED FOR UNKNOWN INDICATION
     Dosage: 40 DOSAGE FORM, QD
     Route: 055
  2. NACL [Suspect]
     Active Substance: SODIUM CHLORIDE
     Dosage: 0.9%
     Route: 055
  3. ATROVENT [Suspect]
     Active Substance: IPRATROPIUM BROMIDE
     Dosage: 5 DOSAGE FORM, QD
     Route: 065
  4. ATROVENT [Suspect]
     Active Substance: IPRATROPIUM BROMIDE
     Dosage: 40 DOSAGE FORM, QD
     Route: 055
  5. ATROVENT [Suspect]
     Active Substance: IPRATROPIUM BROMIDE
     Dosage: 10 DOSAGE FORM, QD
     Route: 055
  6. SALBUTAMOL [Suspect]
     Active Substance: ALBUTEROL
     Dosage: 10 DOSAGE FORM, QD
     Route: 055
  7. NACL [Suspect]
     Active Substance: SODIUM CHLORIDE
     Indication: PRODUCT USED FOR UNKNOWN INDICATION
     Dosage: 0.9%
     Route: 055
  8. SALBUTAMOL [Suspect]
     Active Substance: ALBUTEROL
     Indication: PRODUCT USED FOR UNKNOWN INDICATION
     Dosage: 40 DOSAGE FORM, QD
     Route: 055
  9. ATROVENT [Suspect]
     Active Substance: IPRATROPIUM BROMIDE
     Dosage: 5 DOSAGE FORM, QD
     Route: 055
     Dates: start: 20190708, end: 20200130

REACTIONS (5)
  - Overdose [Unknown]
  - Myocardial infarction [Unknown]
  - Off label use [Unknown]
  - Intraocular pressure increased [Not Recovered/Not Resolved]
  - Product quality issue [Unknown]

NARRATIVE: CASE EVENT DATE: 2018
